FAERS Safety Report 14016137 (Version 1)
Quarter: 2017Q3

REPORT INFORMATION
  Report Type: Report from Study
  Country: JP (occurrence: JP)
  Receive Date: 20170927
  Receipt Date: 20170927
  Transmission Date: 20171128
  Serious: Yes (Other)
  Sender: FDA-Public Use
  Company Number: JP-TEVA-808963ROM

PATIENT
  Age: 80 Year
  Sex: Male

DRUGS (3)
  1. PACLITAXEL. [Suspect]
     Active Substance: PACLITAXEL
     Indication: LUNG ADENOCARCINOMA
     Route: 065
  2. CARBOPLATIN. [Suspect]
     Active Substance: CARBOPLATIN
     Indication: LUNG ADENOCARCINOMA
     Route: 065
  3. PICIBANIL [Suspect]
     Active Substance: OK-432
     Dosage: 0.2 KE/KG, MAXIMUM 10KE/BODY DILUTED IN 100ML OF PHYSIOLOGICAL SALINE
     Route: 038

REACTIONS (1)
  - Interstitial lung disease [Unknown]
